FAERS Safety Report 5734614-3 (Version None)
Quarter: 2008Q2

REPORT INFORMATION
  Report Type: 
  Country: None (occurrence: None)
  Receive Date: 20080508
  Receipt Date: 20080501
  Transmission Date: 20081010
  Serious: Yes (Life-Threatening, Hospitalization)
  Sender: FDA-Public Use
  Company Number: 230065J07USA

PATIENT
  Age: 47 Year
  Sex: Female

DRUGS (3)
  1. REBIF [Suspect]
     Indication: MULTIPLE SCLEROSIS
     Dosage: 44 MCG, 3 IN 1 WEEKS, SUBCUTANEOUS
     Dates: start: 20050501, end: 20071001
  2. CELEBREX [Suspect]
  3. INFLAMMATORY DRUG (ANTIINFLAMMATORY/ANTIRHEUMATIC PRODUCTS) [Concomitant]

REACTIONS (6)
  - ARTERIAL THROMBOSIS [None]
  - GASTRIC DISORDER [None]
  - PNEUMONIA [None]
  - PULMONARY THROMBOSIS [None]
  - THROMBOSIS [None]
  - VENOUS THROMBOSIS [None]
